FAERS Safety Report 8241924-7 (Version None)
Quarter: 2012Q1

REPORT INFORMATION
  Report Type: 
  Country: None (occurrence: None)
  Receive Date: 20120329
  Receipt Date: 20120319
  Transmission Date: 20120608
  Serious: Yes (Other)
  Sender: FDA-Public Use
  Company Number: US-BRISTOL-MYERS SQUIBB COMPANY-16465502

PATIENT
  Age: 29 Year
  Sex: Male

DRUGS (3)
  1. ABILIFY [Suspect]
  2. CYMBALTA [Suspect]
  3. NEURONTIN [Suspect]

REACTIONS (3)
  - SYNCOPE [None]
  - CONVULSION [None]
  - FOOT FRACTURE [None]
